FAERS Safety Report 18993107 (Version 2)
Quarter: 2021Q2

REPORT INFORMATION
  Report Type: Spontaneous
  Country: JP (occurrence: JP)
  Receive Date: 20210310
  Receipt Date: 20210420
  Transmission Date: 20210717
  Serious: Yes (Death, Other)
  Sender: FDA-Public Use
  Company Number: JP-GLAXOSMITHKLINE-JP2021JPN059213

PATIENT
  Age: 82 Year
  Sex: Male

DRUGS (7)
  1. TRELEGY ELLIPTA [Suspect]
     Active Substance: FLUTICASONE FUROATE\UMECLIDINIUM BROMIDE\VILANTEROL TRIFENATATE
     Indication: ASTHMA
     Dosage: 200 ?G, QD
     Route: 055
     Dates: start: 20210218, end: 20210223
  2. CLEANAL [Concomitant]
     Active Substance: FUDOSTEINE
     Dosage: 200 MG
     Route: 048
     Dates: end: 20210223
  3. THEOLONG [Concomitant]
     Active Substance: THEOPHYLLINE ANHYDROUS
     Dosage: 100 MG
     Route: 048
     Dates: end: 20210223
  4. REMINYL [Concomitant]
     Active Substance: GALANTAMINE
     Dosage: 8 MG
     Route: 048
     Dates: end: 20210223
  5. NUCALA [Suspect]
     Active Substance: MEPOLIZUMAB
     Indication: ASTHMA
     Dosage: 100 MG
     Route: 058
     Dates: start: 20210218
  6. PRANLUKAST [Concomitant]
     Active Substance: PRANLUKAST
     Dosage: 225 MG
     Route: 048
     Dates: end: 20210223
  7. BAKUMONDO?TO [Concomitant]
     Active Substance: HERBALS
     Dosage: UNK
     Route: 048
     Dates: end: 20210223

REACTIONS (2)
  - Pneumonia [Fatal]
  - Asthma [Fatal]
